FAERS Safety Report 21004840 (Version 1)
Quarter: 2022Q2

REPORT INFORMATION
  Report Type: Spontaneous
  Country: GB (occurrence: GB)
  Receive Date: 20220624
  Receipt Date: 20220624
  Transmission Date: 20220720
  Serious: Yes (Congenital Anomaly, Other)
  Sender: FDA-Public Use
  Company Number: GB-NORGINE LIMITED-NOR202200414

PATIENT
  Age: 20 Week

DRUGS (9)
  1. ONDANSETRON [Suspect]
     Active Substance: ONDANSETRON
     Indication: Foetal exposure during pregnancy
     Dosage: 4 MILLIGRAM DAILY; UNIT DOSE : 4 MG, FREQUENCY : 1 , FREQUENCY TIME : 1 DAYS
     Route: 064
     Dates: start: 20080114
  2. ONDANSETRON [Suspect]
     Active Substance: ONDANSETRON
     Indication: Foetal exposure during pregnancy
     Dosage: 12 MILLIGRAM DAILY; 4 MILLIGRAM, TID (PARENT ROUTE IS IV/IM/ORAL)), UNIT DOSE : 12 MG, FREQUENCY : 1
     Route: 064
     Dates: start: 20080114
  3. ONDANSETRON [Suspect]
     Active Substance: ONDANSETRON
     Indication: Vomiting
     Dosage: 8 MILLIGRAM DAILY; (4 MILLIGRAM, BID (PARENT ROUTE IS IV/IM/ORAL)), UNIT DOSE : 8 MG, FREQUENCY : 1
     Route: 064
     Dates: start: 20080112, end: 20080114
  4. CYCLIZINE [Concomitant]
     Active Substance: CYCLIZINE
     Indication: Foetal exposure during pregnancy
     Dosage: 150 MILLIGRAM DAILY; 50 MILLIGRAM, TID (PARENT ROUTE IV/IM/ORAL ROUTE), UNIT DOSE : 150 MG, FREQUENC
     Route: 064
     Dates: start: 20080109, end: 20080114
  5. FOLIC ACID [Concomitant]
     Active Substance: FOLIC ACID
     Indication: Foetal exposure during pregnancy
     Dosage: 5 MILLIGRAM DAILY; MATERNAL DOSE: 5 MG, QD (MORNING), UNIT DOSE : 5 MG, FREQUENCY : 1 , FREQUENCY TI
     Route: 064
     Dates: start: 200801
  6. METOCLOPRAMIDE [Concomitant]
     Active Substance: METOCLOPRAMIDE
     Indication: Foetal exposure during pregnancy
     Dosage: 30 MILLIGRAM DAILY;  (10 MILLIGRAM, TID (PARENT ROUTEIV/IM/ORAL), UNIT DOSE :  30 MG, FREQUENCY : 1
     Route: 064
     Dates: start: 20080116
  7. METOCLOPRAMIDE [Concomitant]
     Active Substance: METOCLOPRAMIDE
     Dosage: 30 MILLIGRAM DAILY;  (10 MILLIGRAM, TID (PARENT ROUTEIV/IM/ORAL), UNIT DOSE :  30 MG, FREQUENCY : 1
     Route: 064
     Dates: start: 20080109, end: 20080115
  8. PROMETHAZINE [Concomitant]
     Active Substance: PROMETHAZINE HYDROCHLORIDE
     Indication: Foetal exposure during pregnancy
     Dosage: 75 MILLIGRAM DAILY;  (MATERNAL DOSE: 25 MG, TID ), THERAPY DURATION : 1 DAYS, UNIT DOSE : 75 MG, FRE
     Route: 064
     Dates: start: 20080109, end: 20080110
  9. THIAMINE [Concomitant]
     Active Substance: THIAMINE
     Indication: Foetal exposure during pregnancy
     Dosage: 25 MILLIGRAM DAILY;  MATERNAL DOSE: 25 MG, QD,UNIT DOSE : 25 MG ,  FREQUENCY : 1 , FREQUENCY TIME :
     Route: 064
     Dates: start: 20080114

REACTIONS (7)
  - Spinal deformity [Unknown]
  - Gastroschisis [Unknown]
  - Foetal growth restriction [Unknown]
  - Heart disease congenital [Unknown]
  - Foetal malformation [Unknown]
  - Maternal drugs affecting foetus [Unknown]
  - Foetal exposure during pregnancy [Unknown]

NARRATIVE: CASE EVENT DATE: 20080101
